FAERS Safety Report 9243284 (Version 2)
Quarter: 2013Q2

REPORT INFORMATION
  Report Type: Spontaneous
  Country: US (occurrence: US)
  Receive Date: 20130419
  Receipt Date: 20130503
  Transmission Date: 20140414
  Serious: Yes (Other)
  Sender: FDA-Public Use
  Company Number: US-UCBSA-083670

PATIENT
  Age: 67 Year
  Sex: Female

DRUGS (11)
  1. CIMZIA [Suspect]
     Indication: RHEUMATOID ARTHRITIS
     Dosage: DOSE : 400
     Route: 058
     Dates: start: 201303, end: 20130321
  2. SIMVASTATIN [Concomitant]
     Dosage: UNKNOWN DOSE
  3. ATELVIA [Concomitant]
     Route: 048
  4. MOBIC [Concomitant]
     Route: 048
  5. METHOTREXATE [Concomitant]
     Dosage: 2.5 MG 7 TABS WEEKLY
     Route: 048
  6. FOLIC ACID [Concomitant]
     Route: 048
  7. LISINOPRIL [Concomitant]
     Route: 048
  8. METFORMIN [Concomitant]
     Route: 048
  9. VIT D [Concomitant]
  10. CALCIUM [Concomitant]
  11. PENNSAID [Concomitant]
     Dosage: 1.5% 40GTT AS NEEDED
     Route: 061

REACTIONS (1)
  - Oral herpes [Recovered/Resolved]
